FAERS Safety Report 11364270 (Version 1)
Quarter: 2015Q3

REPORT INFORMATION
  Report Type: Spontaneous
  Country: US (occurrence: None)
  Receive Date: 20150810
  Receipt Date: 20150810
  Transmission Date: 20151125
  Serious: Yes (Life-Threatening, Hospitalization, Disabling)
  Sender: FDA-Public Use
  Company Number: None

PATIENT
  Age: 35 Year
  Sex: Male
  Weight: 88 kg

DRUGS (1)
  1. NAVANE [Suspect]
     Active Substance: THIOTHIXENE

REACTIONS (4)
  - Suicidal ideation [None]
  - Hyperhidrosis [None]
  - Depression [None]
  - Tremor [None]
